FAERS Safety Report 4998732-X (Version None)
Quarter: 2006Q2

REPORT INFORMATION
  Report Type: 
  Country: None (occurrence: None)
  Receive Date: 20060508
  Receipt Date: 20060313
  Transmission Date: 20061013
  Serious: Yes (Hospitalization)
  Sender: FDA-Public Use
  Company Number: 6021210

PATIENT
  Age: 88 Year
  Sex: Female

DRUGS (13)
  1. LEVOTHYROXINE SODIUM [Suspect]
     Indication: HYPOTHYROIDISM
     Dosage: 100,000 MCG
     Route: 048
  2. FENOFIBRATE [Suspect]
     Indication: LIPID METABOLISM DISORDER
     Dosage: 160 MG
     Route: 048
     Dates: end: 20060215
  3. SPIRONOLACTONE [Suspect]
     Indication: ESSENTIAL HYPERTENSION
     Dosage: 25 MG, ORAL
     Route: 048
     Dates: end: 20060215
  4. ALTIZIDE           (ALTIZIDE) [Suspect]
     Indication: ESSENTIAL HYPERTENSION
     Dosage: 25 MG, ORAL
     Route: 048
     Dates: end: 20060215
  5. FUROSEMIDE [Suspect]
     Indication: ESSENTIAL HYPERTENSION
     Dosage: 40 MG, ORAL
     Route: 048
     Dates: end: 20060215
  6. BUFLOMEDIL          (BUFLOMEDIL) [Suspect]
     Indication: ARTERIAL RUPTURE
     Dosage: 600 MG, ORAL
     Route: 048
     Dates: end: 20060215
  7. FERROUS SULFATE TAB [Concomitant]
  8. ACETAMINOPHEN [Concomitant]
  9. MORPHINE SULFATE [Concomitant]
  10. ZOPICLONE (ZOPICLONE) [Concomitant]
  11. MOVICOL [Concomitant]
  12. ALOPLASTINE       (GLYCEROL, ZINC OXIDE, TALC) [Concomitant]
  13. ZETUVIT [Concomitant]

REACTIONS (11)
  - AORTIC DISORDER [None]
  - BODY TEMPERATURE INCREASED [None]
  - CARDIOMEGALY [None]
  - EJECTION FRACTION DECREASED [None]
  - ELECTROCARDIOGRAM ST SEGMENT ABNORMAL [None]
  - ELECTROCARDIOGRAM T WAVE ABNORMAL [None]
  - LOSS OF CONSCIOUSNESS [None]
  - MALAISE [None]
  - MYOCARDIAL ISCHAEMIA [None]
  - RESPIRATORY RATE INCREASED [None]
  - VERTIGO [None]
